FAERS Safety Report 15196559 (Version 2)
Quarter: 2018Q4

REPORT INFORMATION
  Report Type: Spontaneous
  Country: DE (occurrence: DE)
  Receive Date: 20180725
  Receipt Date: 20181218
  Transmission Date: 20190204
  Serious: Yes (Other)
  Sender: FDA-Public Use
  Company Number: PHHY2018DE049544

PATIENT
  Age: 23 Year
  Sex: Female

DRUGS (6)
  1. TILIDINE+NALOXONE [Suspect]
     Active Substance: NALOXONE HYDROCHLORIDE\TILIDINE HYDROCHLORIDE
     Indication: NEURALGIA
  2. TAPENTADOL [Suspect]
     Active Substance: TAPENTADOL
     Indication: NEURALGIA
     Dosage: UNK UNK,UNK
     Route: 065
  3. DULOXETINE. [Suspect]
     Active Substance: DULOXETINE
     Indication: RADICULOPATHY
     Dosage: UNK
     Route: 065
  4. LIDOCAINE. [Suspect]
     Active Substance: LIDOCAINE
     Indication: RADICULOPATHY
     Dosage: UNK
     Route: 061
  5. TILIDINE+NALOXONE [Suspect]
     Active Substance: NALOXONE HYDROCHLORIDE\TILIDINE HYDROCHLORIDE
     Indication: RADICULOPATHY
     Dosage: UNK
     Route: 065
  6. TAPENTADOL [Suspect]
     Active Substance: TAPENTADOL
     Indication: RADICULOPATHY
     Dosage: 300 MG, UNK
     Route: 065

REACTIONS (5)
  - Drug effect incomplete [Unknown]
  - Drug ineffective for unapproved indication [Unknown]
  - Therapeutic response decreased [Unknown]
  - Cognitive disorder [Unknown]
  - Product use in unapproved indication [Unknown]
